FAERS Safety Report 13426361 (Version 3)
Quarter: 2017Q2

REPORT INFORMATION
  Report Type: Report from Study
  Country: CN (occurrence: CN)
  Receive Date: 20170411
  Receipt Date: 20170426
  Transmission Date: 20170830
  Serious: Yes (Other)
  Sender: FDA-Public Use
  Company Number: CN-ROCHE-1562691

PATIENT
  Age: 48 Year
  Sex: Male
  Weight: 66 kg

DRUGS (2)
  1. AVASTIN [Suspect]
     Active Substance: BEVACIZUMAB
     Dosage: RESTARTED
     Route: 042
  2. AVASTIN [Suspect]
     Active Substance: BEVACIZUMAB
     Indication: COLON CANCER METASTATIC
     Route: 041
     Dates: start: 20150206, end: 20160412

REACTIONS (15)
  - Platelet count decreased [Unknown]
  - Lung neoplasm [Unknown]
  - Hypoaesthesia [Unknown]
  - Diarrhoea [Unknown]
  - Intestinal obstruction [Recovered/Resolved]
  - Diarrhoea [Recovering/Resolving]
  - Neurotoxicity [Unknown]
  - Hepatic function abnormal [Unknown]
  - Insomnia [Unknown]
  - White blood cell count decreased [Unknown]
  - Hepatic neoplasm [Unknown]
  - Pyrexia [Unknown]
  - Blood albumin decreased [Unknown]
  - Depressed mood [Unknown]
  - Vomiting [Recovering/Resolving]

NARRATIVE: CASE EVENT DATE: 20150831
